FAERS Safety Report 8839727 (Version 1)
Quarter: 2012Q4

REPORT INFORMATION
  Report Type: Spontaneous
  Country: US (occurrence: None)
  Receive Date: 20121011
  Receipt Date: 20121011
  Transmission Date: 20130627
  Serious: Yes (Life-Threatening)
  Sender: FDA-Public Use
  Company Number: None

PATIENT
  Age: 16 Year
  Sex: Male
  Weight: 72.58 kg

DRUGS (6)
  1. STELAZINE [Suspect]
     Indication: SCHIZOID PERSONALITY
     Dates: start: 19850301, end: 19851201
  2. STELAZINE [Suspect]
     Indication: ADOLESCENCE
     Dates: start: 19850301, end: 19851201
  3. NAVANE [Suspect]
     Indication: SCHIZOPHRENIA
     Dates: end: 1970
  4. NAVANE [Suspect]
     Indication: ADOLESCENCE
     Dates: end: 1970
  5. NAVANE [Suspect]
     Indication: SCHIZOPHRENIA
     Dates: start: 19850401, end: 19850401
  6. NAVANE [Suspect]
     Indication: ADOLESCENCE
     Dates: start: 19850401, end: 19850401

REACTIONS (5)
  - Feeling abnormal [None]
  - Suicide attempt [None]
  - Panic reaction [None]
  - Fear [None]
  - Electric shock [None]
